FAERS Safety Report 4788304-4 (Version None)
Quarter: 2005Q4

REPORT INFORMATION
  Report Type: 
  Country: None (occurrence: None)
  Receive Date: 20051005
  Receipt Date: 20050826
  Transmission Date: 20060501
  Serious: Yes (Other)
  Sender: FDA-Public Use
  Company Number: 2005GB01664

PATIENT
  Age: 77 Year
  Sex: Female
  Weight: 61.4 kg

DRUGS (6)
  1. OMEPRAZOLE [Suspect]
     Indication: HIATUS HERNIA
     Route: 048
     Dates: start: 20050803, end: 20050830
  2. SIMVASTATIN [Suspect]
     Indication: BLOOD CHOLESTEROL INCREASED
     Route: 048
     Dates: start: 20010101
  3. SIMVASTATIN [Suspect]
     Route: 048
     Dates: end: 20050830
  4. SLOW-K [Concomitant]
  5. FUROSEMIDE [Concomitant]
  6. WARFARIN SODIUM [Concomitant]

REACTIONS (7)
  - DIZZINESS [None]
  - HYPERHIDROSIS [None]
  - MUSCULAR WEAKNESS [None]
  - PARAESTHESIA [None]
  - TENSION HEADACHE [None]
  - VERTIGO [None]
  - VISUAL DISTURBANCE [None]
